FAERS Safety Report 9061929 (Version 1)
Quarter: 2013Q1

REPORT INFORMATION
  Report Type: Spontaneous
  Country: US (occurrence: None)
  Receive Date: 20130118
  Receipt Date: 20130118
  Transmission Date: 20140127
  Serious: Yes (Death)
  Sender: FDA-Public Use
  Company Number: 2013P1000395

PATIENT
  Age: 56 Year
  Sex: Female

DRUGS (11)
  1. BUTALBITAL, ACETAMINOPHEN + CAFFEINE [Suspect]
     Indication: COMPLETED SUICIDE
     Route: 048
  2. LISINOPRIL [Suspect]
     Indication: COMPLETED SUICIDE
     Route: 048
  3. GABAPENTIN [Suspect]
     Indication: COMPLETED SUICIDE
     Route: 048
  4. ZOLPIDEM [Suspect]
     Indication: COMPLETED SUICIDE
     Route: 048
  5. NAPROXEN [Suspect]
     Indication: COMPLETED SUICIDE
     Route: 048
  6. UNKNOWN ^CYCLIC ANTIDEPRESSANTS^ [Suspect]
     Indication: COMPLETED SUICIDE
     Route: 048
  7. CITALOPRAM [Suspect]
     Indication: COMPLETED SUICIDE
     Route: 048
  8. CLONAZEPAM [Suspect]
     Indication: COMPLETED SUICIDE
     Route: 048
  9. CYCLOBENZAPRINE [Suspect]
     Indication: COMPLETED SUICIDE
     Route: 048
  10. SUMATRIPTAN [Suspect]
     Indication: COMPLETED SUICIDE
     Route: 048
  11. ^DRUG UNKNOWN^ [Suspect]
     Indication: COMPLETED SUICIDE
     Route: 048

REACTIONS (1)
  - Completed suicide [None]
